FAERS Safety Report 25825362 (Version 1)
Quarter: 2025Q3

REPORT INFORMATION
  Report Type: Spontaneous
  Country: US (occurrence: US)
  Receive Date: 20250919
  Receipt Date: 20250919
  Transmission Date: 20251021
  Serious: No
  Sender: EISAI
  Company Number: US-Eisai-EC-2025-196426

PATIENT
  Age: 64 Year
  Sex: Female

DRUGS (11)
  1. LEQEMBI [Suspect]
     Active Substance: LECANEMAB-IRMB
     Indication: Dementia Alzheimer^s type
     Route: 042
     Dates: start: 20250718
  2. BUPROPION [Concomitant]
     Active Substance: BUPROPION
  3. ASCORBIC ACID [Concomitant]
     Active Substance: ASCORBIC ACID
  4. MINOXIDIL [Concomitant]
     Active Substance: MINOXIDIL
  5. DONEPEZIL [Concomitant]
     Active Substance: DONEPEZIL
  6. OMEGA-3 ACIDS [Concomitant]
     Active Substance: OMEGA-3 FATTY ACIDS
  7. VITAMINS [Concomitant]
     Active Substance: VITAMINS
  8. ROSUVASTATIN [Concomitant]
     Active Substance: ROSUVASTATIN
  9. MYRBETRIQ [Concomitant]
     Active Substance: MIRABEGRON
  10. VALSARTAN [Concomitant]
     Active Substance: VALSARTAN
  11. VITAMIN B12 [Concomitant]
     Active Substance: CYANOCOBALAMIN

REACTIONS (1)
  - Amyloid related imaging abnormality-microhaemorrhages and haemosiderin deposits [Unknown]

NARRATIVE: CASE EVENT DATE: 20250905
